FAERS Safety Report 9360115 (Version 1)
Quarter: 2013Q2

REPORT INFORMATION
  Report Type: Spontaneous
  Country: TR (occurrence: TR)
  Receive Date: 20130621
  Receipt Date: 20130621
  Transmission Date: 20140414
  Serious: Yes (Hospitalization)
  Sender: FDA-Public Use
  Company Number: TR-INDICUS PHARMA-000097

PATIENT
  Age: 29 Year
  Sex: Female

DRUGS (1)
  1. METFORMIN HYDROCHLORIDE [Suspect]
     Dosage: TOOK 80 GRAM

REACTIONS (6)
  - Suicide attempt [Unknown]
  - Alanine aminotransferase abnormal [Unknown]
  - Aspartate aminotransferase abnormal [Unknown]
  - Toxicity to various agents [Unknown]
  - Vomiting [None]
  - Haemodialysis [None]
